FAERS Safety Report 7625016-3 (Version None)
Quarter: 2011Q3

REPORT INFORMATION
  Report Type: 
  Country: None (occurrence: None)
  Receive Date: 20110721
  Receipt Date: 20110712
  Transmission Date: 20111222
  Serious: No
  Sender: FDA-Public Use
  Company Number: US-BIOGENIDEC-2010BI040086

PATIENT
  Sex: Female

DRUGS (2)
  1. AMPYRA [Concomitant]
     Indication: MULTIPLE SCLEROSIS
  2. TYSABRI [Suspect]
     Indication: MULTIPLE SCLEROSIS
     Route: 042
     Dates: start: 20100326

REACTIONS (11)
  - BLOOD PRESSURE DECREASED [None]
  - FLUSHING [None]
  - CANDIDIASIS [None]
  - MICTURITION URGENCY [None]
  - WHITE BLOOD CELL COUNT DECREASED [None]
  - FATIGUE [None]
  - POOR VENOUS ACCESS [None]
  - HYPOAESTHESIA [None]
  - POLLAKIURIA [None]
  - DYSSTASIA [None]
  - PAIN IN EXTREMITY [None]
